FAERS Safety Report 9228719 (Version 1)
Quarter: 2013Q2

REPORT INFORMATION
  Report Type: Report from Study
  Country: PH (occurrence: PH)
  Receive Date: 20130412
  Receipt Date: 20130412
  Transmission Date: 20140414
  Serious: Yes (Death, Other)
  Sender: FDA-Public Use
  Company Number: PH-GENZYME-RENA-1001753

PATIENT
  Sex: Male

DRUGS (4)
  1. RENVELA [Suspect]
     Indication: HYPERPHOSPHATAEMIA
     Dosage: 0.8 G, UNK
     Route: 048
     Dates: start: 20121107
  2. OMEPRAZOLE [Concomitant]
     Indication: PEPTIC ULCER
     Dosage: 40 MG, BID
     Route: 065
     Dates: start: 20130222
  3. FEBUXOSTAT [Concomitant]
     Indication: HYPERURICAEMIA
     Dosage: 40 MG, QD
     Route: 065
     Dates: start: 20130222
  4. FOLIC ACID [Concomitant]
     Indication: ANAEMIA
     Dosage: UNK
     Route: 065
     Dates: start: 20130222

REACTIONS (3)
  - Jaundice [Unknown]
  - Mass [Unknown]
  - Death [Fatal]
